FAERS Safety Report 19298382 (Version 1)
Quarter: 2021Q2

REPORT INFORMATION
  Report Type: Spontaneous
  Country: GB (occurrence: GB)
  Receive Date: 20210525
  Receipt Date: 20210525
  Transmission Date: 20210717
  Serious: Yes (Other)
  Sender: FDA-Public Use
  Company Number: GB-AUROBINDO-AUR-APL-2021-021077

PATIENT
  Age: 27 Year
  Sex: Female
  Weight: 110 kg

DRUGS (1)
  1. CO?AMOXICLAV [Suspect]
     Active Substance: AMOXICILLIN\CLAVULANATE POTASSIUM
     Indication: ILL-DEFINED DISORDER
     Dosage: UNK
     Route: 048
     Dates: start: 20210512

REACTIONS (2)
  - Throat irritation [Recovering/Resolving]
  - Rash [Recovering/Resolving]

NARRATIVE: CASE EVENT DATE: 20210513
